FAERS Safety Report 15616343 (Version 1)
Quarter: 2018Q4

REPORT INFORMATION
  Report Type: Spontaneous
  Country: AU (occurrence: AU)
  Receive Date: 20181114
  Receipt Date: 20181114
  Transmission Date: 20190205
  Serious: Yes (Other)
  Sender: FDA-Public Use
  Company Number: AU-ROCHE-2212794

PATIENT
  Sex: Female

DRUGS (2)
  1. MABTHERA [Suspect]
     Active Substance: RITUXIMAB
     Indication: NON-HODGKIN^S LYMPHOMA
     Route: 065
     Dates: start: 2016
  2. MABTHERA [Suspect]
     Active Substance: RITUXIMAB
     Dosage: IN THE BEGINNING
     Route: 065
     Dates: start: 2018

REACTIONS (1)
  - Renal disorder [Unknown]
